FAERS Safety Report 15178843 (Version 5)
Quarter: 2019Q1

REPORT INFORMATION
  Report Type: Spontaneous
  Country: JP (occurrence: JP)
  Receive Date: 20180722
  Receipt Date: 20190214
  Transmission Date: 20190417
  Serious: Yes (Hospitalization)
  Sender: FDA-Public Use
  Company Number: PHJP2018JP013178

PATIENT
  Age: 58 Year
  Sex: Female
  Weight: 61 kg

DRUGS (2)
  1. COSENTYX [Suspect]
     Active Substance: SECUKINUMAB
     Indication: PSORIASIS
     Dosage: 300 MG, QW
     Route: 058
     Dates: start: 20160913, end: 20161011
  2. COSENTYX [Suspect]
     Active Substance: SECUKINUMAB
     Dosage: 300 MG, 4W
     Route: 058
     Dates: end: 20180414

REACTIONS (12)
  - Melaena [Unknown]
  - Abdominal pain [Unknown]
  - Blood albumin decreased [Unknown]
  - Pyrexia [Unknown]
  - Gastrointestinal mucosal exfoliation [Unknown]
  - Lower gastrointestinal haemorrhage [Unknown]
  - Colitis ulcerative [Recovering/Resolving]
  - Occult blood [Unknown]
  - Oedema [Unknown]
  - Diarrhoea [Unknown]
  - Gastrointestinal erosion [Unknown]
  - Intestinal congestion [Unknown]

NARRATIVE: CASE EVENT DATE: 20180525
